FAERS Safety Report 7944093-3 (Version None)
Quarter: 2011Q4

REPORT INFORMATION
  Report Type: 
  Country: None (occurrence: None)
  Receive Date: 20111128
  Receipt Date: 20111116
  Transmission Date: 20120403
  Serious: Yes (Other)
  Sender: FDA-Public Use
  Company Number: BE-ASTRAZENECA-2011SE51177

PATIENT
  Age: 81 Year
  Sex: Male

DRUGS (5)
  1. SOTALOL HCL [Concomitant]
  2. CELEBREX [Concomitant]
     Indication: ANTIINFLAMMATORY THERAPY
  3. WARFARIN SODIUM [Concomitant]
     Indication: CARDIAC ASSISTANCE DEVICE USER
  4. ZOLADEX [Suspect]
     Dosage: EVERY THREE MONTHS
     Route: 058
     Dates: end: 20110824
  5. NOXIN (ASPEN) [Concomitant]

REACTIONS (7)
  - HEADACHE [None]
  - VISION BLURRED [None]
  - BLOOD GLUCOSE INCREASED [None]
  - PARAESTHESIA [None]
  - DECREASED APPETITE [None]
  - GYNAECOMASTIA [None]
  - HOT FLUSH [None]
